FAERS Safety Report 5505736-7 (Version None)
Quarter: 2007Q4

REPORT INFORMATION
  Report Type: 
  Country: None (occurrence: None)
  Receive Date: 20071102
  Receipt Date: 20071031
  Transmission Date: 20080405
  Serious: Yes (Death, Hospitalization)
  Sender: FDA-Public Use
  Company Number: IN-SANOFI-SYNTHELABO-F01200701403

PATIENT
  Sex: Female

DRUGS (3)
  1. PAZOPANIB [Suspect]
     Route: 048
     Dates: start: 20071008, end: 20071024
  2. OXALIPLATIN [Suspect]
     Indication: COLORECTAL CANCER
     Route: 042
     Dates: start: 20071008, end: 20071008
  3. CAPECITABINE [Suspect]
     Route: 048
     Dates: start: 20071008

REACTIONS (4)
  - ACUTE RESPIRATORY DISTRESS SYNDROME [None]
  - HYPOTENSION [None]
  - MUCOSAL INFLAMMATION [None]
  - SEPSIS [None]
